FAERS Safety Report 5525120-X (Version None)
Quarter: 2007Q4

REPORT INFORMATION
  Report Type: 
  Country: None (occurrence: None)
  Receive Date: 20071119
  Receipt Date: 20071119
  Transmission Date: 20080405
  Serious: Yes (Life-Threatening, Hospitalization)
  Sender: FDA-Public Use
  Company Number: None

PATIENT
  Age: 63 Year
  Sex: Female

DRUGS (3)
  1. WARFARIN SODIUM [Suspect]
     Indication: ATRIAL FIBRILLATION
     Dosage: WARFARIN DAILY PO
     Route: 048
  2. DIGOXIN [Concomitant]
  3. EFFEXOR [Concomitant]

REACTIONS (3)
  - CEREBRAL HAEMORRHAGE [None]
  - COAGULOPATHY [None]
  - CONVULSION [None]
